FAERS Safety Report 5948097-1 (Version None)
Quarter: 2008Q4

REPORT INFORMATION
  Report Type: 
  Country: None (occurrence: None)
  Receive Date: 20081111
  Receipt Date: 20081103
  Transmission Date: 20090506
  Serious: Yes (Death, Life-Threatening)
  Sender: FDA-Public Use
  Company Number: ES-BAYER-200829702GPV

PATIENT
  Age: 88 Year
  Sex: Male

DRUGS (2)
  1. ASPIRIN [Suspect]
     Indication: ARTERIOSCLEROSIS
     Dosage: UNIT DOSE: 300 MG
     Route: 048
     Dates: end: 20080915
  2. PLAVIX [Interacting]
     Indication: HYPERTENSION
     Route: 048
     Dates: end: 20080915

REACTIONS (5)
  - ANAEMIA [None]
  - HAEMATEMESIS [None]
  - HYPOVOLAEMIA [None]
  - HYPOVOLAEMIC SHOCK [None]
  - MALLORY-WEISS SYNDROME [None]
